FAERS Safety Report 7279756-9 (Version None)
Quarter: 2011Q1

REPORT INFORMATION
  Report Type: 
  Country: None (occurrence: None)
  Receive Date: 20110208
  Receipt Date: 20110202
  Transmission Date: 20110831
  Serious: Yes (Other)
  Sender: FDA-Public Use
  Company Number: JP-PFIZER INC-2011023628

PATIENT
  Age: 70 Year
  Sex: Female

DRUGS (1)
  1. ZITHROMAX [Suspect]
     Dosage: 500 MG, 1X/DAY
     Dates: start: 20110129, end: 20110131

REACTIONS (2)
  - EOSINOPHILIC PNEUMONIA [None]
  - GRANULOCYTE COUNT DECREASED [None]
